FAERS Safety Report 6851103-3 (Version None)
Quarter: 2010Q3

REPORT INFORMATION
  Report Type: 
  Country: None (occurrence: None)
  Receive Date: 20100716
  Receipt Date: 20080108
  Transmission Date: 20110219
  Serious: No
  Sender: FDA-Public Use
  Company Number: US-PFIZER INC-2007091516

PATIENT
  Sex: Female
  Weight: 72.6 kg

DRUGS (5)
  1. CHANTIX [Suspect]
     Indication: SMOKING CESSATION THERAPY
     Dates: start: 20071001
  2. LOTREL [Concomitant]
  3. ZYRTEC [Concomitant]
  4. FISH OIL [Concomitant]
  5. LOVAZA [Concomitant]

REACTIONS (2)
  - FATIGUE [None]
  - SLEEP DISORDER [None]
